FAERS Safety Report 9735562 (Version 1)
Quarter: 2013Q4

REPORT INFORMATION
  Report Type: Spontaneous
  Country: US (occurrence: US)
  Receive Date: 20131206
  Receipt Date: 20131206
  Transmission Date: 20140711
  Serious: No
  Sender: FDA-Public Use
  Company Number: US-GILEAD-2009-0023975

PATIENT
  Sex: Male

DRUGS (9)
  1. LETAIRIS [Suspect]
     Indication: PULMONARY ARTERIAL HYPERTENSION
     Route: 048
     Dates: start: 20090223
  2. VIAGRA [Concomitant]
  3. WARFARIN [Concomitant]
  4. FUROSEMIDE [Concomitant]
  5. CARVEDILOL [Concomitant]
  6. RAMIPRIL [Concomitant]
  7. ALBUTEROL [Concomitant]
  8. PROZAC [Concomitant]
  9. MIRAPEX [Concomitant]

REACTIONS (2)
  - Dry throat [Unknown]
  - Cough [Unknown]
